FAERS Safety Report 5324159-7 (Version None)
Quarter: 2007Q2

REPORT INFORMATION
  Report Type: 
  Country: None (occurrence: None)
  Receive Date: 20070514
  Receipt Date: 20070504
  Transmission Date: 20071010
  Serious: Yes (Death, Hospitalization, Other)
  Sender: FDA-Public Use
  Company Number: B0470587A

PATIENT
  Age: 21 Year
  Sex: Male

DRUGS (1)
  1. PARACETAMOL [Suspect]
     Route: 065

REACTIONS (5)
  - ACUTE HEPATIC FAILURE [None]
  - DEATH [None]
  - HEPATIC ENCEPHALOPATHY [None]
  - OVERDOSE [None]
  - RENAL FAILURE [None]
